FAERS Safety Report 20523857 (Version 1)
Quarter: 2022Q1

REPORT INFORMATION
  Report Type: Spontaneous
  Country: US (occurrence: US)
  Receive Date: 20220228
  Receipt Date: 20220228
  Transmission Date: 20220423
  Serious: No
  Sender: FDA-Public Use
  Company Number: US-SANOFI-00984892

PATIENT
  Age: 58 Year
  Sex: Female

DRUGS (1)
  1. DUPIXENT [Suspect]
     Active Substance: DUPILUMAB
     Indication: Chronic rhinosinusitis with nasal polyps
     Dosage: 300 MG, TOTAL
     Dates: start: 20220207, end: 20220215

REACTIONS (4)
  - Fatigue [Unknown]
  - Nausea [Unknown]
  - Headache [Unknown]
  - Abdominal pain [Unknown]
